FAERS Safety Report 22959002 (Version 3)
Quarter: 2023Q4

REPORT INFORMATION
  Report Type: Report from Study
  Country: US (occurrence: US)
  Receive Date: 20230919
  Receipt Date: 20231010
  Transmission Date: 20240110
  Serious: Yes (Other)
  Sender: FDA-Public Use
  Company Number: US-HORIZON THERAPEUTICS-HZN-2023-004083

PATIENT

DRUGS (14)
  1. TEPEZZA [Suspect]
     Active Substance: TEPROTUMUMAB-TRBW
     Indication: Endocrine ophthalmopathy
     Dosage: FIRST INFUSION: 640 MG, EVERY 3 WEEKS
     Route: 042
     Dates: start: 20230516
  2. TEPEZZA [Suspect]
     Active Substance: TEPROTUMUMAB-TRBW
     Dosage: INFUSION (UNK) 1680 MG, EVERY 3 WEEKS
     Route: 042
     Dates: start: 2023
  3. TEPEZZA [Suspect]
     Active Substance: TEPROTUMUMAB-TRBW
     Dosage: INFUSION (UNK)  1680 MG,  EVERY 21 DAYS , LAST INFUSION
     Route: 042
     Dates: start: 20230628
  4. TEPEZZA [Suspect]
     Active Substance: TEPROTUMUMAB-TRBW
     Dosage: 4TH INFUSION
     Route: 042
     Dates: start: 2023
  5. TEPEZZA [Suspect]
     Active Substance: TEPROTUMUMAB-TRBW
     Dosage: INFUSION (PREVIOUS)  1680 MG, EVERY 3 WEEKS
     Route: 042
     Dates: start: 20230810
  6. TEPEZZA [Suspect]
     Active Substance: TEPROTUMUMAB-TRBW
     Dosage: SIXTH INFUSION, 1680 MG, EVERY 3 WEEKS
     Route: 042
     Dates: start: 20230831
  7. AMITRIPTYLINE [Concomitant]
     Active Substance: AMITRIPTYLINE
     Route: 065
  8. SELENIUM [Concomitant]
     Active Substance: SELENIUM
     Route: 065
  9. CYCLOBENZAPRINE [Concomitant]
     Active Substance: CYCLOBENZAPRINE
     Route: 065
  10. MIRENA [Concomitant]
     Active Substance: LEVONORGESTREL
     Route: 065
  11. Moisture eyes [Concomitant]
     Route: 047
  12. SINGULAIR [Concomitant]
     Active Substance: MONTELUKAST SODIUM
     Route: 065
  13. VITAMIN D3 [Concomitant]
     Active Substance: CHOLECALCIFEROL
     Route: 065
  14. VITAMINS [Concomitant]
     Active Substance: VITAMINS
     Indication: Product used for unknown indication

REACTIONS (13)
  - Conductive deafness [Not Recovered/Not Resolved]
  - Ear discomfort [Not Recovered/Not Resolved]
  - Decreased appetite [Recovered/Resolved]
  - Constipation [Not Recovered/Not Resolved]
  - Dyspepsia [Recovering/Resolving]
  - Hair texture abnormal [Not Recovered/Not Resolved]
  - Pain [Unknown]
  - Headache [Recovering/Resolving]
  - Fatigue [Unknown]
  - Diarrhoea [Not Recovered/Not Resolved]
  - Alopecia [Not Recovered/Not Resolved]
  - Tinnitus [Not Recovered/Not Resolved]
  - Foot fracture [Unknown]

NARRATIVE: CASE EVENT DATE: 20230101
